FAERS Safety Report 4358095-X (Version None)
Quarter: 2004Q2

REPORT INFORMATION
  Report Type: 
  Country: None (occurrence: None)
  Receive Date: 20040511
  Receipt Date: 20040503
  Transmission Date: 20050107
  Serious: Yes (Disabling)
  Sender: FDA-Public Use
  Company Number: 2004023492

PATIENT
  Age: 40 Year
  Sex: Female
  Weight: 60 kg

DRUGS (2)
  1. SORTIS (ATORVASTATIN) [Suspect]
     Indication: HYPERLIPIDAEMIA
     Dosage: 5 MG 10 MG, 1 IN 1 D, ORAL
     Route: 048
     Dates: start: 20040318, end: 20040321
  2. EUGYNON (ETHINYLSTRADIOL. LEVONORGESTREL) [Concomitant]

REACTIONS (1)
  - DEEP VEIN THROMBOSIS [None]
